FAERS Safety Report 26092033 (Version 1)
Quarter: 2025Q4

REPORT INFORMATION
  Report Type: Spontaneous
  Country: US (occurrence: US)
  Receive Date: 20251126
  Receipt Date: 20251126
  Transmission Date: 20260118
  Serious: Yes (Death, Life-Threatening, Hospitalization)
  Sender: ACCORD
  Company Number: US-Accord-514762

PATIENT
  Age: 29 Year
  Sex: Female

DRUGS (9)
  1. CLOZAPINE [Suspect]
     Active Substance: CLOZAPINE
     Indication: Schizoaffective disorder bipolar type
     Dosage: HS
  2. GLYCOPYRROLATE [Suspect]
     Active Substance: GLYCOPYRROLATE
     Indication: Product used for unknown indication
     Dosage: GLYCOPYRROLATE 1 MG TID
  3. HALOPERIDOL [Concomitant]
     Active Substance: HALOPERIDOL
     Dosage: 100 MG IM EVERY FOUR WEEKS
     Route: 030
  4. DIVALPROEX SODIUM [Concomitant]
     Active Substance: DIVALPROEX SODIUM
     Dosage: 500 MG EVERY MORNING
  5. TOPIRAMATE [Concomitant]
     Active Substance: TOPIRAMATE
  6. ATORVASTATIN [Concomitant]
     Active Substance: ATORVASTATIN
  7. FAMOTIDINE [Concomitant]
     Active Substance: FAMOTIDINE
  8. LORATINE [Concomitant]
     Dosage: PRN, AS NECESSARY
  9. DIVALPROEX SODIUM [Concomitant]
     Active Substance: DIVALPROEX SODIUM
     Dosage: 750 MG EVERY NIGHT

REACTIONS (14)
  - Megacolon [Unknown]
  - Gastrointestinal necrosis [Unknown]
  - Abdominal compartment syndrome [Unknown]
  - Small intestinal obstruction [Unknown]
  - Sepsis [Fatal]
  - Multiple organ dysfunction syndrome [Fatal]
  - Vena cava thrombosis [Unknown]
  - Mesenteric vein thrombosis [Unknown]
  - Pulmonary embolism [Unknown]
  - Pneumonia [Fatal]
  - Large intestinal obstruction [Fatal]
  - Hypoxia [Unknown]
  - Bronchial secretion retention [Unknown]
  - Cardiac arrest [Unknown]
